FAERS Safety Report 8808662 (Version 1)
Quarter: 2012Q4

REPORT INFORMATION
  Report Type: 
  Country: US (occurrence: US)
  Receive Date: 20120926
  Receipt Date: 20120926
  Transmission Date: 20130627
  Serious: Yes (Other)
  Sender: FDA-Public Use
  Company Number: PHEH2012US018330

PATIENT
  Age: 40 Year
  Sex: Female

DRUGS (17)
  1. VIVELLE [Suspect]
     Indication: HORMONE REPLACEMENT THERAPY
     Dosage: 1 DF, BIW
     Route: 062
  2. FLEXERIL [Concomitant]
     Indication: BLADDER DISCOMFORT
     Dosage: 10 mg, TID
     Route: 048
  3. XANAX [Concomitant]
     Indication: ANXIETY
     Dosage: 1 mg, QID
     Route: 048
  4. ZOFRAN [Concomitant]
     Indication: NAUSEA
     Dosage: 4 mg, QID
     Route: 048
  5. VALIUM [Concomitant]
     Indication: PAIN
     Dosage: 10 mg, TID
     Route: 067
  6. PHENOBARBITAL [Concomitant]
     Indication: CONVULSION
     Dosage: 64.8 UKN, UNK
     Route: 048
  7. BACTRIM DS [Concomitant]
     Indication: INFECTION
     Dosage: 1 DF, BID
     Route: 048
  8. MACRODANTIN [Concomitant]
     Indication: INFECTION
     Dosage: 50 mg, (2 at bedtime )
     Route: 048
  9. URELLE [Concomitant]
     Indication: BURNING SENSATION
     Dosage: 2 DF, QID
     Route: 048
  10. DEPAKOTE [Concomitant]
     Indication: CONVULSION
     Dosage: 500 mg, (2 at bedtime )
     Route: 048
  11. LIDOCAINE [Concomitant]
     Indication: HYPOAESTHESIA
     Dosage: 1 DF, QID
     Route: 067
  12. LIDOCAINE [Concomitant]
     Dosage: 1 DF, TID
  13. LUNESTA [Concomitant]
     Indication: SLEEP DISORDER
     Dosage: 3 mg, (1 at bedtime)
     Route: 048
  14. NORCO [Concomitant]
     Indication: PAIN
     Dosage: 1 DF, QID
     Route: 048
  15. HEPARIN [Concomitant]
     Dosage: 1 DF (10CC), TID
  16. BICARBONATE [Concomitant]
     Dosage: 1 DF (2 CC), TID
  17. LIDOCAINE [Concomitant]
     Dosage: 1 DF (10 CC), TID

REACTIONS (12)
  - Candidiasis [Unknown]
  - Staphylococcal infection [Recovered/Resolved]
  - Convulsion [Unknown]
  - Influenza like illness [Unknown]
  - Pyrexia [Unknown]
  - Vision blurred [Unknown]
  - Ageusia [Unknown]
  - Amnesia [Unknown]
  - Tremor [Unknown]
  - Fatigue [Unknown]
  - Hunger [Unknown]
  - Gastrointestinal disorder [Unknown]
